FAERS Safety Report 8037699-7 (Version None)
Quarter: 2012Q1

REPORT INFORMATION
  Report Type: 
  Country: None (occurrence: None)
  Receive Date: 20120111
  Receipt Date: 20120102
  Transmission Date: 20120608
  Serious: Yes (Hospitalization)
  Sender: FDA-Public Use
  Company Number: FR-ASTRAZENECA-2011SE76138

PATIENT
  Age: 85 Year
  Sex: Female

DRUGS (11)
  1. PERINDOPRIL ERBUMINE [Interacting]
     Route: 048
     Dates: end: 20110228
  2. SOTALOL HCL [Concomitant]
  3. ACETAMINOPHEN [Concomitant]
  4. VASTAREL [Concomitant]
  5. ALLOPURINOL [Concomitant]
  6. HYPERIUM [Concomitant]
  7. SPASFON [Concomitant]
  8. CANDESARTAN CILEXETIL AND HYDROCHLOROTHIAZIDE [Suspect]
     Dosage: 16 MG / 12.5 MG
     Route: 048
     Dates: end: 20110228
  9. ASPEGIC 325 [Concomitant]
  10. LASIX [Concomitant]
  11. COLCHICINE [Concomitant]

REACTIONS (3)
  - HYPONATRAEMIA [None]
  - DRUG INTERACTION [None]
  - RENAL FAILURE ACUTE [None]
